FAERS Safety Report 9630994 (Version 1)
Quarter: 2013Q4

REPORT INFORMATION
  Report Type: Spontaneous
  Country: US (occurrence: None)
  Receive Date: 20131016
  Receipt Date: 20131016
  Transmission Date: 20140711
  Serious: Yes (Other)
  Sender: FDA-Public Use
  Company Number: UCM201310-000076

PATIENT
  Age: 14 Year
  Sex: Female

DRUGS (3)
  1. DIVALPROEX SODIUM [Suspect]
     Indication: PETIT MAL EPILEPSY
     Dosage: PER DAY
  2. LAMOTRIGINE (LAMOTRIGINE) (LAMOTRIGINE) [Suspect]
  3. MEROPENEM [Suspect]

REACTIONS (4)
  - Grand mal convulsion [None]
  - Drug interaction [None]
  - Drug ineffective [None]
  - Unresponsive to stimuli [None]
